FAERS Safety Report 12543645 (Version 1)
Quarter: 2016Q3

REPORT INFORMATION
  Report Type: Spontaneous
  Country: US (occurrence: None)
  Receive Date: 20160708
  Receipt Date: 20160708
  Transmission Date: 20161109
  Serious: Yes (Life-Threatening, Hospitalization)
  Sender: FDA-Public Use
  Company Number: None

PATIENT
  Age: 49 Year
  Sex: Male
  Weight: 230 kg

DRUGS (7)
  1. DOXASOZIN [Concomitant]
  2. AXID [Concomitant]
     Active Substance: NIZATIDINE
  3. ATENOLOL. [Concomitant]
     Active Substance: ATENOLOL
  4. BACTRIM [Suspect]
     Active Substance: SULFAMETHOXAZOLE\TRIMETHOPRIM
     Indication: PROSTATE INFECTION
     Route: 048
     Dates: start: 20160611, end: 20160618
  5. CAPTOPRIL. [Concomitant]
     Active Substance: CAPTOPRIL
  6. HYDROCHLOROTHIAZIDE. [Concomitant]
     Active Substance: HYDROCHLOROTHIAZIDE
  7. IBUPROFEN. [Concomitant]
     Active Substance: IBUPROFEN

REACTIONS (5)
  - Haematoma [None]
  - Faeces discoloured [None]
  - Thrombocytopenia [None]
  - Contusion [None]
  - Petechiae [None]

NARRATIVE: CASE EVENT DATE: 20160618
